FAERS Safety Report 24560312 (Version 1)
Quarter: 2024Q4

REPORT INFORMATION
  Report Type: Spontaneous
  Country: US (occurrence: None)
  Receive Date: 20241028
  Receipt Date: 20241028
  Transmission Date: 20250114
  Serious: Yes (Hospitalization)
  Sender: Public
  Company Number: None

PATIENT
  Age: 36 Year
  Sex: Female

DRUGS (2)
  1. AMBRISENTAN [Suspect]
     Active Substance: AMBRISENTAN
     Indication: Pulmonary arterial hypertension
     Dosage: FREQUENCY : DAILY;?
     Route: 048
     Dates: start: 20240913
  2. SILDENAFIL [Concomitant]
     Dates: start: 20240906

REACTIONS (3)
  - Dizziness [None]
  - Dehydration [None]
  - Blood pressure decreased [None]

NARRATIVE: CASE EVENT DATE: 20241028
